FAERS Safety Report 4992688-1 (Version None)
Quarter: 2006Q2

REPORT INFORMATION
  Report Type: 
  Country: None (occurrence: None)
  Receive Date: 20060504
  Receipt Date: 20060420
  Transmission Date: 20061013
  Serious: Yes (Hospitalization)
  Sender: FDA-Public Use
  Company Number: US-BOEHRINGER INGELHEIM PHARMACEUTICALS, INC.-2006-BP-04469BP

PATIENT
  Sex: Male

DRUGS (6)
  1. FLOMAX [Suspect]
     Dates: end: 20060408
  2. PROAMATINE [Concomitant]
     Dates: start: 20020901
  3. CARBIDOPA LEVIDOPA [Concomitant]
     Dates: start: 20020901
  4. AMANTADINE HCL [Concomitant]
     Dates: start: 20020901
  5. MIRAPEX [Concomitant]
     Dates: start: 20020901
  6. FOSAMAX + D [Concomitant]
     Dates: start: 20051001

REACTIONS (3)
  - HYPOTENSION [None]
  - LOSS OF CONSCIOUSNESS [None]
  - SYNCOPE [None]
